FAERS Safety Report 13053618 (Version 1)
Quarter: 2016Q4

REPORT INFORMATION
  Report Type: Spontaneous
  Country: HR (occurrence: HR)
  Receive Date: 20161222
  Receipt Date: 20161222
  Transmission Date: 20170207
  Serious: Yes (Other)
  Sender: FDA-Public Use
  Company Number: PHHY2016HR171387

PATIENT
  Sex: Female
  Weight: 68 kg

DRUGS (10)
  1. VENTOLIN [Concomitant]
     Active Substance: ALBUTEROL SULFATE
     Indication: CHRONIC OBSTRUCTIVE PULMONARY DISEASE
     Route: 055
  2. PACLITAXEL SANDOZ [Suspect]
     Active Substance: PACLITAXEL
     Indication: LUNG ADENOCARCINOMA
     Dosage: 300 MG, QD
     Route: 042
     Dates: start: 20161016
  3. VILPIN [Concomitant]
     Active Substance: AMLODIPINE BESYLATE
     Route: 048
  4. MATRIFEN [Concomitant]
     Active Substance: FENTANYL
     Indication: TUMOUR PAIN
     Dosage: 1 DF, UNK
     Route: 003
  5. ACIPAN [Concomitant]
     Active Substance: PANTOPRAZOLE SODIUM
     Indication: GASTRITIS PROPHYLAXIS
     Dosage: 40 MG, UNK
     Route: 048
  6. SEVREDOL [Concomitant]
     Active Substance: MORPHINE
     Indication: PAIN
     Dosage: 10 MG, BID
     Route: 048
  7. CARBOPLATINA [Concomitant]
     Active Substance: CARBOPLATIN
     Indication: LUNG ADENOCARCINOMA
     Dosage: 150 MG; 450
     Route: 042
     Dates: start: 20161016
  8. ATROVENT [Concomitant]
     Active Substance: IPRATROPIUM BROMIDE
     Indication: GASTRITIS PROPHYLAXIS
     Route: 055
  9. KALINOR [Concomitant]
     Active Substance: POTASSIUM CITRATE
     Indication: ELECTROLYTE SUBSTITUTION THERAPY
     Dosage: 1 DF, QD
     Route: 048
  10. FURSEMID [Concomitant]
     Active Substance: FUROSEMIDE
     Dosage: 20 MG, BID
     Route: 048

REACTIONS (3)
  - Anaphylactic reaction [Unknown]
  - Back pain [Unknown]
  - Asphyxia [Unknown]

NARRATIVE: CASE EVENT DATE: 20161124
